FAERS Safety Report 6953309 (Version 5)
Quarter: 2015Q3

REPORT INFORMATION
  Report Type: Spontaneous
  Country: US (occurrence: US)
  Receive Date: 20090326
  Receipt Date: 20150803
  Transmission Date: 20151125
  Serious: Yes (Other)
  Sender: FDA-Public Use
  Company Number: US-GILEAD-2008-0019372

PATIENT
  Age: 49 Year
  Sex: Male
  Weight: 81.65 kg

DRUGS (9)
  1. SPIRONOLACTONE. [Concomitant]
     Active Substance: SPIRONOLACTONE
  2. NORVASC [Concomitant]
     Active Substance: AMLODIPINE BESYLATE
  3. NOVOLIN N [Concomitant]
     Active Substance: INSULIN HUMAN
  4. CALCIUM CITRATE [Concomitant]
     Active Substance: CALCIUM CITRATE
  5. NOVOLOG [Concomitant]
     Active Substance: INSULIN ASPART
  6. LETAIRIS [Suspect]
     Active Substance: AMBRISENTAN
     Indication: PULMONARY ARTERIAL HYPERTENSION
     Route: 048
     Dates: start: 20080312, end: 20081124
  7. GABAPENTIN. [Concomitant]
     Active Substance: GABAPENTIN
  8. PROTONIX [Concomitant]
     Active Substance: PANTOPRAZOLE SODIUM
  9. XIFAXAN [Concomitant]
     Active Substance: RIFAXIMIN

REACTIONS (1)
  - Hepatic enzyme increased [Unknown]

NARRATIVE: CASE EVENT DATE: 20081124
